FAERS Safety Report 10200148 (Version 1)
Quarter: 2014Q2

REPORT INFORMATION
  Report Type: Report from Study
  Country: CN (occurrence: CN)
  Receive Date: 20140527
  Receipt Date: 20140527
  Transmission Date: 20141212
  Serious: Yes (Death)
  Sender: FDA-Public Use
  Company Number: CN-BAXTER-2014BAX026542

PATIENT
  Sex: 0

DRUGS (4)
  1. ENDOXAN 1G [Suspect]
     Indication: BONE MARROW CONDITIONING REGIMEN
     Dosage: ON DAYS -2 AND -3
     Route: 065
  2. FLUDARABINE [Suspect]
     Indication: BONE MARROW CONDITIONING REGIMEN
     Dosage: ON DAYS -10 TO -6
     Route: 065
  3. CYTARABINE [Suspect]
     Indication: BONE MARROW CONDITIONING REGIMEN
     Dosage: 2 G/M2 ON DAYS -10 TO -6
     Route: 065
  4. ETOPOSIDE [Suspect]
     Indication: BONE MARROW CONDITIONING REGIMEN
     Dosage: ON DAYS -3 AND -2
     Route: 065

REACTIONS (1)
  - Toxicity to various agents [Fatal]
